FAERS Safety Report 9896938 (Version 8)
Quarter: 2014Q2

REPORT INFORMATION
  Report Type: Report from Study
  Country: CA (occurrence: CA)
  Receive Date: 20140214
  Receipt Date: 20140407
  Transmission Date: 20141212
  Serious: Yes (Hospitalization, Other)
  Sender: FDA-Public Use
  Company Number: CA-ROCHE-1325440

PATIENT
  Age: 35 Year
  Sex: Female
  Weight: 52.3 kg

DRUGS (14)
  1. AVASTIN [Suspect]
     Indication: CERVIX CARCINOMA
     Route: 042
     Dates: start: 20131204
  2. AVASTIN [Suspect]
     Route: 042
     Dates: start: 20140116, end: 20140206
  3. METHADONE [Concomitant]
     Dosage: 2.5MG IN AM AND 5 MG PM
     Route: 065
  4. TYLENOL [Concomitant]
     Indication: PREMEDICATION
     Route: 048
     Dates: start: 20131204, end: 20140116
  5. TAPAZOLE [Concomitant]
     Route: 048
  6. NEUPOGEN [Concomitant]
  7. CARBOPLATIN [Concomitant]
     Dosage: AUC 6
     Route: 065
  8. CARBOPLATIN [Concomitant]
     Dosage: AUG 5
     Route: 065
     Dates: start: 20130715
  9. PACLITAXEL [Concomitant]
     Route: 065
  10. BENADRYL (CANADA) [Concomitant]
     Route: 048
     Dates: start: 20131204, end: 20140116
  11. TOPOTECAN [Concomitant]
     Indication: CERVIX CARCINOMA
     Dosage: ONCE DAILY FOR 5 DAYS EVERY 3 WEEKS
     Route: 065
     Dates: start: 20131105
  12. ATIVAN [Concomitant]
     Route: 048
  13. LOVENOX [Concomitant]
     Dosage: 1 (100 MG/ML)
     Route: 058
  14. NAPROXEN [Concomitant]
     Dosage: 1-500 MG
     Route: 065

REACTIONS (32)
  - Urinary tract infection [Recovered/Resolved]
  - Clostridium difficile infection [Not Recovered/Not Resolved]
  - Neutrophil count decreased [Recovered/Resolved]
  - White blood cell count decreased [Recovered/Resolved]
  - Haemoglobin decreased [Recovered/Resolved]
  - Platelet count decreased [Recovered/Resolved]
  - Back pain [Recovered/Resolved]
  - Pyrexia [Not Recovered/Not Resolved]
  - Hydronephrosis [Not Recovered/Not Resolved]
  - Cystitis [Not Recovered/Not Resolved]
  - Kidney infection [Not Recovered/Not Resolved]
  - Diarrhoea [Unknown]
  - Dyspepsia [Recovered/Resolved]
  - Abdominal discomfort [Not Recovered/Not Resolved]
  - Anorectal discomfort [Not Recovered/Not Resolved]
  - Epistaxis [Not Recovered/Not Resolved]
  - Pharyngitis streptococcal [Recovered/Resolved]
  - Mass [Unknown]
  - Weight decreased [Not Recovered/Not Resolved]
  - Fatigue [Not Recovered/Not Resolved]
  - Decreased appetite [Unknown]
  - Haematocrit decreased [Unknown]
  - Monocyte count decreased [Unknown]
  - Lymphocyte count decreased [Unknown]
  - Blood alkaline phosphatase increased [Unknown]
  - Abdominal discomfort [Unknown]
  - Proctitis [Unknown]
  - Fatigue [Not Recovered/Not Resolved]
  - Somnolence [Not Recovered/Not Resolved]
  - Off label use [Unknown]
  - Rhinorrhoea [Unknown]
  - Disease progression [Unknown]
